FAERS Safety Report 9001464 (Version 1)
Quarter: 2013Q1

REPORT INFORMATION
  Report Type: Spontaneous
  Country: GB (occurrence: GB)
  Receive Date: 20130107
  Receipt Date: 20130107
  Transmission Date: 20140127
  Serious: Yes (Hospitalization)
  Sender: FDA-Public Use
  Company Number: PHHY2013GB001074

PATIENT
  Age: 65 Year
  Sex: Male

DRUGS (3)
  1. CITALOPRAM [Suspect]
     Indication: DEPRESSION
     Dosage: 60 MG, QD
     Route: 048
     Dates: start: 201003, end: 201212
  2. CLOZAPINE [Concomitant]
  3. AMISULPRIDE [Concomitant]

REACTIONS (5)
  - Haematemesis [Recovering/Resolving]
  - Abdominal pain upper [Unknown]
  - Malaise [Unknown]
  - Fall [Unknown]
  - Prescribed overdose [Unknown]
